FAERS Safety Report 9770961 (Version 2)
Quarter: 2013Q4

REPORT INFORMATION
  Report Type: Spontaneous
  Country: DK (occurrence: IT)
  Receive Date: 20131218
  Receipt Date: 20131218
  Transmission Date: 20140711
  Serious: Yes (Other)
  Sender: FDA-Public Use
  Company Number: IT-FRI-1000041373

PATIENT
  Sex: Female

DRUGS (4)
  1. ESCITALOPRAM [Suspect]
     Indication: PANIC DISORDER
     Dosage: 10 MG
     Dates: start: 200504, end: 201104
  2. ESCITALOPRAM [Suspect]
     Dosage: 10 MG
  3. ALPRAZOLAM [Concomitant]
     Indication: PANIC DISORDER
     Dosage: 0.25 MG
     Dates: start: 200504, end: 20100729
  4. LEVOTHYROXINE [Concomitant]
     Indication: THYROIDECTOMY
     Dosage: 125 MCG
     Dates: start: 2000

REACTIONS (2)
  - Pre-eclampsia [Unknown]
  - Pregnancy [Recovered/Resolved]
